FAERS Safety Report 12965513 (Version 3)
Quarter: 2017Q1

REPORT INFORMATION
  Report Type: Spontaneous
  Country: IT (occurrence: IT)
  Receive Date: 20161122
  Receipt Date: 20170207
  Transmission Date: 20170428
  Serious: Yes (Hospitalization, Other)
  Sender: FDA-Public Use
  Company Number: IT-MYLANLABS-2016M1050675

PATIENT

DRUGS (2)
  1. PACLITAXEL. [Suspect]
     Active Substance: PACLITAXEL
     Indication: NEOPLASM
  2. PACLITAXEL. [Suspect]
     Active Substance: PACLITAXEL
     Indication: CHEMOTHERAPY
     Dosage: 100 MG, CYCLE
     Route: 042
     Dates: start: 20161107, end: 20161107

REACTIONS (6)
  - Flushing [Recovered/Resolved]
  - Tachycardia [Recovered/Resolved]
  - Faecaloma [Recovered/Resolved]
  - Dyspnoea [Recovered/Resolved]
  - Band sensation [Recovered/Resolved]
  - Blood pressure systolic increased [Recovered/Resolved]

NARRATIVE: CASE EVENT DATE: 20161107
